FAERS Safety Report 14386620 (Version 2)
Quarter: 2018Q4

REPORT INFORMATION
  Report Type: Spontaneous
  Country: US (occurrence: US)
  Receive Date: 20180115
  Receipt Date: 20181205
  Transmission Date: 20190204
  Serious: Yes (Other)
  Sender: FDA-Public Use
  Company Number: US-SA-2017SA094462

PATIENT
  Age: 58 Year
  Sex: Female
  Weight: 74 kg

DRUGS (9)
  1. CARBOPLATIN. [Concomitant]
     Active Substance: CARBOPLATIN
     Dosage: UNKNOWN,QCY
  2. HERCEPTIN [Concomitant]
     Active Substance: TRASTUZUMAB
     Dosage: UNKNOWN,
  3. XANAX [Concomitant]
     Active Substance: ALPRAZOLAM
     Dosage: UNKNOWN,PRN
     Dates: start: 2008
  4. VITAMINS NOS [Concomitant]
     Active Substance: VITAMINS
     Dosage: UNKNOWN
  5. SYNTHROID [Concomitant]
     Active Substance: LEVOTHYROXINE SODIUM
     Dosage: UNKNOWN
     Dates: start: 1984
  6. WELLBUTRIN [Concomitant]
     Active Substance: BUPROPION HYDROCHLORIDE
     Dosage: UNKNOWN
     Dates: start: 2008
  7. TAXOTERE [Suspect]
     Active Substance: DOCETAXEL
     Indication: BREAST CANCER
     Dosage: 140 MG,Q3W
     Route: 042
     Dates: start: 20150602, end: 20150602
  8. TAXOTERE [Suspect]
     Active Substance: DOCETAXEL
     Dosage: 140 MG,Q3W
     Route: 042
     Dates: start: 20150209, end: 20150209
  9. FISH OIL [Concomitant]
     Active Substance: FISH OIL
     Dosage: UNKNOWN
     Dates: start: 1999, end: 2015

REACTIONS (2)
  - Alopecia [Recovering/Resolving]
  - Psychological trauma [Unknown]

NARRATIVE: CASE EVENT DATE: 201512
